FAERS Safety Report 17567161 (Version 1)
Quarter: 2020Q1

REPORT INFORMATION
  Report Type: Spontaneous
  Country: US (occurrence: US)
  Receive Date: 20200320
  Receipt Date: 20200320
  Transmission Date: 20200409
  Serious: Yes (Other)
  Sender: FDA-Public Use
  Company Number: US-IGSA-SR10010039

PATIENT
  Age: 32 Year
  Sex: Female
  Weight: 131.8 kg

DRUGS (8)
  1. PROLASTIN-C LIQUID [Suspect]
     Active Substance: .ALPHA.1-PROTEINASE INHIBITOR HUMAN
     Dosage: UNK UNK, Q.WK.
     Route: 042
     Dates: start: 20181115
  2. PROLASTIN-C LIQUID [Suspect]
     Active Substance: .ALPHA.1-PROTEINASE INHIBITOR HUMAN
     Indication: ALPHA-1 ANTI-TRYPSIN DEFICIENCY
     Dosage: 7909 MG, Q.WK.
     Route: 042
     Dates: start: 20200309, end: 20200309
  3. SYMBICORT [Concomitant]
     Active Substance: BUDESONIDE\FORMOTEROL FUMARATE DIHYDRATE
  4. ALBUTEROL SULFATE. [Concomitant]
     Active Substance: ALBUTEROL SULFATE
  5. NUVARING [Concomitant]
     Active Substance: ETHINYL ESTRADIOL\ETONOGESTREL
  6. ZITHROMAX [Concomitant]
     Active Substance: AZITHROMYCIN DIHYDRATE
     Indication: RESPIRATORY TRACT INFECTION
     Dosage: UNK
     Dates: end: 20200308
  7. LASIX [Concomitant]
     Active Substance: FUROSEMIDE
  8. CEFTIN [Concomitant]
     Active Substance: CEFUROXIME AXETIL

REACTIONS (5)
  - Cough [Recovered/Resolved]
  - Wrong technique in product usage process [Recovered/Resolved]
  - Oropharyngeal pain [Not Recovered/Not Resolved]
  - Air embolism [Recovered/Resolved]
  - Chest pain [Recovered/Resolved]

NARRATIVE: CASE EVENT DATE: 20200309
